FAERS Safety Report 4704933-8 (Version None)
Quarter: 2005Q3

REPORT INFORMATION
  Report Type: 
  Country: None (occurrence: None)
  Receive Date: 20050701
  Receipt Date: 20050624
  Transmission Date: 20060218
  Serious: Yes (Hospitalization)
  Sender: FDA-Public Use
  Company Number: US-BRISTOL-MYERS SQUIBB COMPANY-13016100

PATIENT
  Age: 59 Year
  Sex: Male
  Weight: 99 kg

DRUGS (7)
  1. CETUXIMAB [Suspect]
     Indication: COLORECTAL CANCER METASTATIC
     Route: 042
     Dates: start: 20050510, end: 20050510
  2. FLUOROURACIL [Suspect]
     Indication: COLORECTAL CANCER METASTATIC
     Route: 042
  3. IRINOTECAN [Suspect]
     Indication: COLORECTAL CANCER METASTATIC
     Route: 042
     Dates: start: 20050503, end: 20050503
  4. LEUCOVORIN CALCIUM [Suspect]
     Indication: COLORECTAL CANCER METASTATIC
     Route: 042
     Dates: start: 20050503, end: 20050503
  5. COMPAZINE [Concomitant]
  6. LISINOPRIL [Concomitant]
  7. ZOFRAN [Concomitant]

REACTIONS (1)
  - HYPERGLYCAEMIA [None]
